FAERS Safety Report 7506925-2 (Version None)
Quarter: 2011Q2

REPORT INFORMATION
  Report Type: 
  Country: None (occurrence: None)
  Receive Date: 20110526
  Receipt Date: 20110517
  Transmission Date: 20111010
  Serious: Yes (Hospitalization)
  Sender: FDA-Public Use
  Company Number: US-BAXTER-2011BH014515

PATIENT
  Sex: Male

DRUGS (6)
  1. DIANEAL [Suspect]
     Route: 033
     Dates: end: 20110322
  2. DIANEAL [Suspect]
     Route: 033
     Dates: start: 20110510
  3. DIANEAL [Suspect]
     Route: 033
     Dates: start: 20110510
  4. DIANEAL [Suspect]
     Indication: PERITONEAL DIALYSIS
     Route: 033
     Dates: end: 20110322
  5. DIANEAL [Suspect]
     Route: 033
     Dates: end: 20110322
  6. DIANEAL [Suspect]
     Route: 033
     Dates: start: 20110510

REACTIONS (3)
  - HERNIA [None]
  - HYDROCELE [None]
  - COUGH [None]
